FAERS Safety Report 9830222 (Version 3)
Quarter: 2014Q1

REPORT INFORMATION
  Report Type: Report from Study
  Country: US (occurrence: US)
  Receive Date: 20140120
  Receipt Date: 20140307
  Transmission Date: 20141002
  Serious: Yes (Other)
  Sender: FDA-Public Use
  Company Number: US-ACTELION-A-NJ2014-93643

PATIENT
  Age: 71 Year
  Sex: Male

DRUGS (3)
  1. TRACLEER [Suspect]
     Indication: COR PULMONALE CHRONIC
     Dosage: UNK
     Route: 048
  2. REMODULIN [Concomitant]
  3. RIOCIGUAT [Concomitant]

REACTIONS (3)
  - Pulmonary embolism [Unknown]
  - Surgery [Unknown]
  - Malaise [Unknown]
